FAERS Safety Report 8235645-4 (Version None)
Quarter: 2012Q1

REPORT INFORMATION
  Report Type: 
  Country: None (occurrence: None)
  Receive Date: 20120326
  Receipt Date: 20120319
  Transmission Date: 20120608
  Serious: Yes (Hospitalization)
  Sender: FDA-Public Use
  Company Number: CHPA2012US005218

PATIENT
  Sex: Female
  Weight: 51.247 kg

DRUGS (7)
  1. OXYBUTYNIN [Concomitant]
     Indication: PAIN
  2. CRESTOR [Concomitant]
  3. TRAMADOL HCL [Concomitant]
     Indication: PAIN
  4. LISINOPRIL [Concomitant]
     Indication: BLOOD PRESSURE
  5. DRUG THERAPY NOS [Concomitant]
  6. CLORAZEPATE DIPOTASSIUM [Concomitant]
  7. PREVACID 24 HR [Suspect]
     Indication: GASTROINTESTINAL DISORDER
     Dosage: 30 MG, BID
     Route: 048
     Dates: start: 20090101

REACTIONS (6)
  - DIARRHOEA [None]
  - INCORRECT DRUG ADMINISTRATION DURATION [None]
  - HAEMATOCHEZIA [None]
  - OFF LABEL USE [None]
  - OVERDOSE [None]
  - WRONG TECHNIQUE IN DRUG USAGE PROCESS [None]
